FAERS Safety Report 5077110-1 (Version None)
Quarter: 2006Q3

REPORT INFORMATION
  Report Type: 
  Country: None (occurrence: None)
  Receive Date: 20060810
  Receipt Date: 20051213
  Transmission Date: 20061208
  Serious: No
  Sender: FDA-Public Use
  Company Number: US-GLAXOSMITHKLINE-A0585687A

PATIENT
  Age: 56 Year
  Sex: Female

DRUGS (3)
  1. PAXIL [Suspect]
     Indication: DEPRESSION
     Dosage: 10MG PER DAY
     Route: 048
     Dates: start: 20051202
  2. ATIVAN [Concomitant]
  3. PROTONIX [Concomitant]

REACTIONS (3)
  - DECREASED APPETITE [None]
  - DYSKINESIA [None]
  - NAUSEA [None]
